FAERS Safety Report 17884340 (Version 1)
Quarter: 2020Q2

REPORT INFORMATION
  Report Type: Spontaneous
  Country: GB (occurrence: GB)
  Receive Date: 20200611
  Receipt Date: 20200611
  Transmission Date: 20200714
  Serious: Yes (Disabling)
  Sender: FDA-Public Use
  Company Number: GB-TEVA-2020-GB-1246423

PATIENT
  Age: 82 Year
  Sex: Female
  Weight: 58 kg

DRUGS (13)
  1. PREDNISOLONE. [Suspect]
     Active Substance: PREDNISOLONE
     Indication: POLYMYALGIA RHEUMATICA
     Dosage: 15 MG
     Dates: start: 20200302
  2. SIMVASTATIN. [Concomitant]
     Active Substance: SIMVASTATIN
     Dosage: 1 DOSAGE FORMS DAILY; AT NIGHT.
     Dates: start: 20191015
  3. OXYBUTYNIN. [Concomitant]
     Active Substance: OXYBUTYNIN CHLORIDE
     Indication: HYPERTONIC BLADDER
     Dosage: 2 DOSAGE FORM
     Dates: start: 20191015
  4. FUROSEMIDE. [Concomitant]
     Active Substance: FUROSEMIDE
     Dosage: 1 DOSAGE FORMS DAILY; EACH MORNING.
     Dates: start: 20191015
  5. OLANZAPINE. [Concomitant]
     Active Substance: OLANZAPINE
     Indication: AGITATION
     Dosage: 1 DOSAGE FORMS DAILY; AT NIGHT.,
     Dates: start: 20200421, end: 20200519
  6. AMITRIPTYLINE HYDROCHLORIDE. [Concomitant]
     Active Substance: AMITRIPTYLINE HYDROCHLORIDE
     Dosage: 1 DOSAGE FORMS DAILY; AT NIGHT.
     Dates: start: 20191015
  7. ORAMORPH [Concomitant]
     Active Substance: MORPHINE SULFATE
     Dosage: 2.5 MG
     Dates: start: 20191015
  8. PIVMECILLINAM [Concomitant]
     Active Substance: AMDINOCILLIN PIVOXIL
     Dosage: FOR THE FIRST DOSE, THEN ONE, 2 DOSAGE FORM
     Dates: start: 20200417, end: 20200424
  9. PARACETAMOL [Concomitant]
     Active Substance: ACETAMINOPHEN
     Dosage: EVERY 4 TO 6 HOURS, 2 DOSAGE FORM
     Dates: start: 20191015
  10. CASSIA [Concomitant]
     Dosage: 2 DOSAGE FORMS DAILY; AT NIGHT.
     Dates: start: 20191015
  11. VOLTAROL [Concomitant]
     Active Substance: DICLOFENAC SODIUM
     Dosage: 3 DOSAGE FORM
     Dates: start: 20191015
  12. RAMIPRIL. [Concomitant]
     Active Substance: RAMIPRIL
     Indication: BLOOD PRESSURE MEASUREMENT
     Dosage: 1 DOSAGE FORM
     Dates: start: 20191015
  13. BUNOV [Concomitant]
     Dosage: AS DIRECTED, 1 DOSAGE FORM
     Dates: start: 20191015

REACTIONS (1)
  - Substance-induced psychotic disorder [Recovered/Resolved]

NARRATIVE: CASE EVENT DATE: 20200422
